FAERS Safety Report 6722715-2 (Version None)
Quarter: 2010Q2

REPORT INFORMATION
  Report Type: 
  Country: None (occurrence: None)
  Receive Date: 20100512
  Receipt Date: 20100504
  Transmission Date: 20101027
  Serious: Yes (Other)
  Sender: FDA-Public Use
  Company Number: GB-GILEAD-2010-0028184

PATIENT
  Sex: Male
  Weight: 90 kg

DRUGS (6)
  1. ATRIPLA [Suspect]
     Indication: HIV INFECTION
     Route: 048
     Dates: start: 20100105, end: 20100303
  2. TRUVADA [Suspect]
     Indication: HIV INFECTION
     Dates: start: 20091208, end: 20100105
  3. LOPERAMIDE [Concomitant]
     Indication: DIARRHOEA
     Route: 048
     Dates: start: 20050101
  4. IMIQUIMOD [Concomitant]
     Indication: ANOGENITAL WARTS
     Route: 061
  5. EFAVIRENZ [Concomitant]
     Indication: HIV INFECTION
     Dates: start: 20091208, end: 20100105
  6. EFAVIRENZ [Concomitant]
     Dates: start: 20100330

REACTIONS (4)
  - ALANINE AMINOTRANSFERASE INCREASED [None]
  - GAMMA-GLUTAMYLTRANSFERASE INCREASED [None]
  - NEUTROPHIL COUNT DECREASED [None]
  - WHITE BLOOD CELL COUNT DECREASED [None]
